FAERS Safety Report 19661075 (Version 1)
Quarter: 2021Q3

REPORT INFORMATION
  Report Type: Spontaneous
  Country: PL (occurrence: PL)
  Receive Date: 20210805
  Receipt Date: 20210805
  Transmission Date: 20211014
  Serious: Yes (Death, Other)
  Sender: FDA-Public Use
  Company Number: PL-SA-2021SA254635

PATIENT
  Age: 16 Month
  Sex: Female

DRUGS (6)
  1. ELTROMBOPAG [Concomitant]
     Active Substance: ELTROMBOPAG
     Dosage: 25 MG (3 MG/KG), QD
  2. DIMETHYL SULFOXIDE. [Suspect]
     Active Substance: DIMETHYL SULFOXIDE
     Dosage: 10%
  3. TREOSULFAN [Suspect]
     Active Substance: TREOSULFAN
     Indication: BONE MARROW CONDITIONING REGIMEN
     Dosage: 3X10 G/M2
  4. ANTI?THYMOCYTE GLOBULIN (RABBIT) NOS [Suspect]
     Active Substance: LAPINE T-LYMPHOCYTE IMMUNE GLOBULIN
     Indication: BONE MARROW CONDITIONING REGIMEN
     Dosage: 4 MG/KG
  5. DEXAMETHASONE. [Concomitant]
     Active Substance: DEXAMETHASONE
     Dosage: BOLUS
     Route: 042
  6. FLUDARABINE PHOSPHATE. [Suspect]
     Active Substance: FLUDARABINE PHOSPHATE
     Indication: BONE MARROW CONDITIONING REGIMEN
     Dosage: 5X30 MG/M2

REACTIONS (11)
  - Hypertension [Unknown]
  - Brain stem syndrome [Fatal]
  - Intracranial pressure increased [Fatal]
  - Off label use [Unknown]
  - Neurological decompensation [Fatal]
  - Brain herniation [Fatal]
  - Alpha haemolytic streptococcal infection [Unknown]
  - Brain oedema [Fatal]
  - Brain death [Fatal]
  - Pyrexia [Fatal]
  - Coma [Fatal]
